FAERS Safety Report 14697212 (Version 1)
Quarter: 2018Q1

REPORT INFORMATION
  Report Type: Spontaneous
  Country: US (occurrence: US)
  Receive Date: 20180330
  Receipt Date: 20180330
  Transmission Date: 20180509
  Serious: No
  Sender: FDA-Public Use
  Company Number: US-SA-2017SA122223

PATIENT
  Age: 48 Year
  Sex: Female

DRUGS (1)
  1. ALLEGRA ALLERGY [Suspect]
     Active Substance: FEXOFENADINE HYDROCHLORIDE
     Dosage: PRODUCT STARTS ABOUT 6 MONTHS AGO
     Route: 065

REACTIONS (2)
  - Malaise [Unknown]
  - Abdominal discomfort [Unknown]
